FAERS Safety Report 6540178-7 (Version None)
Quarter: 2010Q1

REPORT INFORMATION
  Report Type: 
  Country: None (occurrence: None)
  Receive Date: 20100115
  Receipt Date: 20100105
  Transmission Date: 20100710
  Serious: Yes (Disabling)
  Sender: FDA-Public Use
  Company Number: GB-WATSON-2010-00128

PATIENT

DRUGS (3)
  1. ALENDRONATE SODIUM [Suspect]
     Indication: DRUG USE FOR UNKNOWN INDICATION
     Dosage: 70 MG, 1/WEEK
     Route: 048
     Dates: start: 20070605, end: 20080826
  2. PAROXETINE [Concomitant]
     Indication: DRUG USE FOR UNKNOWN INDICATION
     Dosage: 40 MG, UNK
     Route: 048
     Dates: start: 20030910
  3. PROCYCLIDINE HYDROCHLORIDE 2MG TAB [Concomitant]
     Indication: DRUG USE FOR UNKNOWN INDICATION
     Dosage: 5 MG, BID
     Route: 048
     Dates: start: 20021014

REACTIONS (2)
  - ABSCESS [None]
  - OSTEONECROSIS [None]
